FAERS Safety Report 4773762-1 (Version None)
Quarter: 2005Q3

REPORT INFORMATION
  Report Type: 
  Country: None (occurrence: None)
  Receive Date: 20050920
  Receipt Date: 20050311
  Transmission Date: 20060218
  Serious: Yes (Hospitalization)
  Sender: FDA-Public Use
  Company Number: US-MERCK-0503USA02644

PATIENT
  Age: 64 Year
  Sex: Female
  Weight: 117 kg

DRUGS (3)
  1. VIOXX [Suspect]
     Indication: RHEUMATOID ARTHRITIS
     Route: 048
     Dates: start: 20020101, end: 20040921
  2. ASPIRIN [Concomitant]
     Route: 048
  3. UNIVASC [Concomitant]
     Indication: HYPERTENSION
     Route: 048

REACTIONS (5)
  - ACUTE CORONARY SYNDROME [None]
  - BLOOD TRIGLYCERIDES INCREASED [None]
  - CHEST PAIN [None]
  - MUSCULOSKELETAL PAIN [None]
  - MYOCARDIAL INFARCTION [None]
